FAERS Safety Report 21829340 (Version 6)
Quarter: 2023Q1

REPORT INFORMATION
  Report Type: Report from Study
  Country: US (occurrence: US)
  Receive Date: 20230106
  Receipt Date: 20230314
  Transmission Date: 20230417
  Serious: No
  Sender: FDA-Public Use
  Company Number: US-002147023-NVSC2023US002112

PATIENT
  Age: 52 Year
  Sex: Female

DRUGS (1)
  1. COSENTYX [Suspect]
     Active Substance: SECUKINUMAB
     Indication: Psoriasis
     Dosage: 300 MG, QW
     Route: 058
     Dates: start: 20221207

REACTIONS (9)
  - Paraesthesia [Unknown]
  - Pruritus [Not Recovered/Not Resolved]
  - Skin haemorrhage [Unknown]
  - Blister [Unknown]
  - Blister rupture [Unknown]
  - Dysstasia [Unknown]
  - Gait disturbance [Unknown]
  - Therapeutic response shortened [Unknown]
  - Therapeutic product effect incomplete [Unknown]

NARRATIVE: CASE EVENT DATE: 20221201
